FAERS Safety Report 9277349 (Version 2)
Quarter: 2013Q2

REPORT INFORMATION
  Report Type: Report from Study
  Country: RU (occurrence: RU)
  Receive Date: 20130508
  Receipt Date: 20130513
  Transmission Date: 20140414
  Serious: Yes (Death)
  Sender: FDA-Public Use
  Company Number: RU-ROCHE-1222342

PATIENT
  Age: 58 Year
  Sex: Female
  Weight: 96 kg

DRUGS (8)
  1. AVASTIN [Suspect]
     Indication: RECTAL CANCER METASTATIC
     Route: 065
     Dates: start: 20130125, end: 20130506
  2. FLUOROURACIL [Concomitant]
     Indication: RECTAL CANCER METASTATIC
     Route: 065
     Dates: start: 20130125, end: 20130506
  3. LEUCOVORIN [Concomitant]
     Indication: RECTAL CANCER METASTATIC
     Route: 065
     Dates: start: 20130125, end: 20130506
  4. LEUCOVORIN [Concomitant]
     Route: 065
  5. LEUCOVORIN [Concomitant]
     Route: 065
     Dates: end: 20130506
  6. OXALIPLATIN [Concomitant]
     Indication: RECTAL CANCER METASTATIC
     Route: 065
     Dates: start: 20130125
  7. OXALIPLATIN [Concomitant]
     Route: 065
  8. OXALIPLATIN [Concomitant]
     Route: 065
     Dates: end: 20130506

REACTIONS (1)
  - Disease progression [Fatal]
